FAERS Safety Report 4879520-1 (Version None)
Quarter: 2006Q1

REPORT INFORMATION
  Report Type: 
  Country: None (occurrence: None)
  Receive Date: 20060111
  Receipt Date: 20051227
  Transmission Date: 20060701
  Serious: Yes (Other)
  Sender: FDA-Public Use
  Company Number: US016356

PATIENT
  Age: 66 Year
  Sex: Male

DRUGS (8)
  1. TRISENOX [Suspect]
     Indication: ACUTE PROMYELOCYTIC LEUKAEMIA
     Dosage: 9.765 MG QD INTRAVENOUS DRIP
     Route: 041
     Dates: start: 20051003, end: 20051106
  2. TRISENOX [Suspect]
     Indication: ACUTE PROMYELOCYTIC LEUKAEMIA
     Dosage: 9.765 MG QD INTRAVENOUS DRIP
     Route: 041
     Dates: start: 20051104, end: 20051108
  3. BIAPENEM [Suspect]
     Dosage: 1.2 GR DAILY INTRAVENOUS DRIP
     Route: 041
     Dates: start: 20051028, end: 20051109
  4. ACYCLOVIR [Suspect]
     Indication: HERPES ZOSTER
     Dates: start: 20051102, end: 20051109
  5. FLUCONAZOLE [Concomitant]
  6. SULFAMETHOXAZOLE + TRIMETHOPRIM [Concomitant]
  7. VERAPAMIL HYDROCHLORIDE [Concomitant]
  8. ELECTROLYTE REPLACEMENT DRUGS [Concomitant]

REACTIONS (1)
  - LEUKOPENIA [None]
